FAERS Safety Report 21710931 (Version 1)
Quarter: 2022Q4

REPORT INFORMATION
  Report Type: Report from Study
  Country: US (occurrence: US)
  Receive Date: 20221212
  Receipt Date: 20221212
  Transmission Date: 20230112
  Serious: No
  Sender: FDA-Public Use
  Company Number: US-ABBVIE-22K-163-4309529-00

PATIENT
  Sex: Female

DRUGS (4)
  1. IMBRUVICA [Suspect]
     Active Substance: IBRUTINIB
     Indication: Waldenstrom^s macroglobulinaemia
     Dosage: THREE 140 MG CAPSULE ONCE A DAY
     Route: 048
     Dates: start: 20201101
  2. EVUSHELD [Concomitant]
     Active Substance: CILGAVIMAB\TIXAGEVIMAB
     Indication: Product used for unknown indication
     Route: 065
  3. PFIZER-BIONTECH COVID-19 VACCINE [Concomitant]
     Active Substance: TOZINAMERAN
     Indication: COVID-19 immunisation
     Dosage: TIME INTERVAL: 1 TOTAL
     Route: 030
  4. PFIZER-BIONTECH COVID-19 VACCINE [Concomitant]
     Active Substance: TOZINAMERAN
     Indication: COVID-19 immunisation
     Dosage: TIME INTERVAL: 1 TOTAL: BOOSTER DOSE
     Route: 030

REACTIONS (7)
  - Dizziness postural [Unknown]
  - Skin fissures [Not Recovered/Not Resolved]
  - Ingrowing nail [Unknown]
  - Inflammation [Not Recovered/Not Resolved]
  - Onychoclasis [Recovering/Resolving]
  - Onychalgia [Recovering/Resolving]
  - Onychomadesis [Recovering/Resolving]
